FAERS Safety Report 13947280 (Version 1)
Quarter: 2017Q3

REPORT INFORMATION
  Report Type: Spontaneous
  Country: JP (occurrence: JP)
  Receive Date: 20170907
  Receipt Date: 20170907
  Transmission Date: 20171128
  Serious: Yes (Other)
  Sender: FDA-Public Use
  Company Number: PHJP1991JP000443

PATIENT
  Age: 54 Year
  Sex: Male

DRUGS (4)
  1. VOLTAREN [Suspect]
     Active Substance: DICLOFENAC SODIUM
     Indication: PAIN
  2. VOLTAREN [Suspect]
     Active Substance: DICLOFENAC SODIUM
     Indication: PYREXIA
     Dosage: 200 MG, QD
     Route: 065
     Dates: start: 19911016, end: 19911127
  3. PONSTEL [Suspect]
     Active Substance: MEFENAMIC ACID
     Indication: PAIN
     Dosage: 30 ML, QD
     Route: 048
     Dates: start: 19911112, end: 19911128
  4. MINOMYCIN [Suspect]
     Active Substance: MINOCYCLINE HYDROCHLORIDE
     Indication: INFECTION PROPHYLAXIS
     Dosage: 1 UNK, QD
     Route: 065
     Dates: start: 19911101, end: 19911127

REACTIONS (2)
  - Pyrexia [Recovered/Resolved]
  - Bone marrow failure [Recovered/Resolved]

NARRATIVE: CASE EVENT DATE: 19911127
